FAERS Safety Report 4541680-X (Version None)
Quarter: 2004Q4

REPORT INFORMATION
  Report Type: 
  Country: None (occurrence: None)
  Receive Date: 20041227
  Receipt Date: 20041208
  Transmission Date: 20050328
  Serious: Yes (Other)
  Sender: FDA-Public Use
  Company Number: PHBS2004AT16817

PATIENT
  Age: 66 Year

DRUGS (1)
  1. VISUDYNE [Suspect]

REACTIONS (2)
  - DISEASE PROGRESSION [None]
  - RETINAL HAEMORRHAGE [None]
